FAERS Safety Report 6812196-2 (Version None)
Quarter: 2010Q3

REPORT INFORMATION
  Report Type: 
  Country: None (occurrence: None)
  Receive Date: 20100701
  Receipt Date: 20100629
  Transmission Date: 20110219
  Serious: Yes (Other)
  Sender: FDA-Public Use
  Company Number: US-ASTRAZENECA-2006UW08859

PATIENT
  Age: 585 Month
  Sex: Female
  Weight: 74.4 kg

DRUGS (17)
  1. SEROQUEL [Suspect]
     Indication: DEPRESSION
     Route: 048
     Dates: start: 20030301, end: 20041201
  2. SEROQUEL [Suspect]
     Indication: INSOMNIA
     Route: 048
     Dates: start: 20030301, end: 20041201
  3. SEROQUEL [Suspect]
     Indication: POST-TRAUMATIC STRESS DISORDER
     Route: 048
     Dates: start: 20030301, end: 20041201
  4. SEROQUEL [Suspect]
     Indication: NIGHTMARE
     Route: 048
     Dates: start: 20030301, end: 20041201
  5. SEROQUEL [Suspect]
     Dosage: 25-50 MG
     Route: 048
     Dates: start: 20030320
  6. SEROQUEL [Suspect]
     Dosage: 25-50 MG
     Route: 048
     Dates: start: 20030320
  7. SEROQUEL [Suspect]
     Dosage: 25-50 MG
     Route: 048
     Dates: start: 20030320
  8. SEROQUEL [Suspect]
     Dosage: 25-50 MG
     Route: 048
     Dates: start: 20030320
  9. RISPERDAL [Suspect]
     Indication: DEPRESSION
     Route: 065
     Dates: start: 20020101, end: 20041001
  10. RISPERDAL [Suspect]
     Indication: INSOMNIA
     Route: 065
     Dates: start: 20020101, end: 20041001
  11. EFFEXOR [Concomitant]
     Dosage: 75-225 MG
     Route: 048
     Dates: start: 20020128
  12. WELLBUTRIN SR [Concomitant]
     Dosage: 100 - 300 MG
     Route: 048
     Dates: start: 20020128
  13. ABILIFY [Concomitant]
     Dosage: 05 - 15 MG
     Route: 048
     Dates: start: 20041004
  14. ABILIFY [Concomitant]
  15. SEREVENT [Concomitant]
     Dates: start: 20010122
  16. FLOVENT [Concomitant]
     Dosage: 110 MG QD 2 PUFFS
     Dates: start: 20010122
  17. ALBUTEROL [Concomitant]
     Dates: start: 20010122

REACTIONS (4)
  - DIABETES MELLITUS [None]
  - DIABETIC COMPLICATION [None]
  - NEUROPATHY PERIPHERAL [None]
  - TYPE 2 DIABETES MELLITUS [None]
